FAERS Safety Report 10404450 (Version 1)
Quarter: 2014Q2

REPORT INFORMATION
  Report Type: Spontaneous
  Country: US (occurrence: None)
  Receive Date: 20140423
  Receipt Date: 20140423
  Transmission Date: 20141212
  Serious: Yes (Other)
  Sender: FDA-Public Use
  Company Number: E2B_00001748

PATIENT
  Age: 52 Year
  Sex: Female
  Weight: 88.91 kg

DRUGS (9)
  1. METFORMIN HYDROCHLORIDE EXTENDED RELEASE [Suspect]
     Indication: DIABETES MELLITUS
     Dosage: 2000 MG (1000 MG, 2 IN 1 D), PER ORAL
     Route: 048
     Dates: start: 201311, end: 20140212
  2. ATENOLOL [Concomitant]
  3. VENLAFAXINE (EFFEXOR XR) [Concomitant]
  4. QUETIAPINE FUMARATE [Suspect]
  5. MULTIVITAMIN + MINERALS (OCCUVITE) [Concomitant]
  6. VITAMIN D2 [Concomitant]
  7. VITAMIN D3 [Concomitant]
  8. TEMAZEPAM [Concomitant]
  9. CLONAZEPAM [Concomitant]

REACTIONS (1)
  - Diarrhoea [None]
